FAERS Safety Report 19024531 (Version 1)
Quarter: 2021Q1

REPORT INFORMATION
  Report Type: Spontaneous
  Country: US (occurrence: US)
  Receive Date: 20210317
  Receipt Date: 20210317
  Transmission Date: 20210420
  Serious: Yes (Hospitalization)
  Sender: FDA-Public Use
  Company Number: US-UNICHEM PHARMACEUTICALS (USA) INC-UCM202103-000233

PATIENT
  Age: 22 Year
  Sex: Male

DRUGS (1)
  1. BACLOFEN. [Suspect]
     Active Substance: BACLOFEN
     Indication: QUADRIPLEGIA
     Dosage: ENTERAL BACLOFEN DOSING WAS DECREASED FROM EVERY 6 HOURS TO EVERY 8 HOURS, AND EVENTUALLY TO EVERY 1

REACTIONS (9)
  - Bruxism [Recovering/Resolving]
  - Withdrawal syndrome [Recovering/Resolving]
  - Rhabdomyolysis [Recovering/Resolving]
  - Headache [Recovering/Resolving]
  - Tachycardia [Recovering/Resolving]
  - Pyrexia [Recovering/Resolving]
  - Lethargy [Recovering/Resolving]
  - Decreased appetite [Recovering/Resolving]
  - Nuchal rigidity [Recovering/Resolving]
